FAERS Safety Report 12703034 (Version 3)
Quarter: 2016Q3

REPORT INFORMATION
  Report Type: Report from Study
  Country: BR (occurrence: BR)
  Receive Date: 20160831
  Receipt Date: 20160922
  Transmission Date: 20161109
  Serious: Yes (Hospitalization, Other)
  Sender: FDA-Public Use
  Company Number: BR-BIOGEN-2016BI00283776

PATIENT
  Age: 68 Year
  Sex: Female

DRUGS (3)
  1. MACRODANTIN [Concomitant]
     Active Substance: NITROFURANTOIN
     Indication: PROPHYLAXIS
     Route: 065
  2. TYSABRI [Suspect]
     Active Substance: NATALIZUMAB
     Indication: MULTIPLE SCLEROSIS
     Route: 042
     Dates: start: 20160721
  3. ALDACTONE [Concomitant]
     Active Substance: SPIRONOLACTONE
     Indication: CARDIAC DISORDER
     Route: 065

REACTIONS (11)
  - Asthma [Recovered/Resolved]
  - Musculoskeletal disorder [Unknown]
  - Pulmonary fibrosis [Recovered/Resolved]
  - Urinary tract infection [Recovered/Resolved]
  - Fluid retention [Unknown]
  - Urinary incontinence [Unknown]
  - Memory impairment [Unknown]
  - Bacterial infection [Unknown]
  - Dyspnoea [Recovered/Resolved]
  - Stress [Not Recovered/Not Resolved]
  - Escherichia infection [Unknown]

NARRATIVE: CASE EVENT DATE: 2016
